FAERS Safety Report 9058326 (Version 1)
Quarter: 2013Q1

REPORT INFORMATION
  Report Type: Spontaneous
  Country: US (occurrence: US)
  Receive Date: 20130211
  Receipt Date: 20130211
  Transmission Date: 20140127
  Serious: Yes (Hospitalization)
  Sender: FDA-Public Use
  Company Number: US-JNJFOC-20130200202

PATIENT
  Age: 68 None
  Sex: Female
  Weight: 70.31 kg

DRUGS (6)
  1. SIMPONI [Suspect]
     Indication: RHEUMATOID ARTHRITIS
     Route: 058
     Dates: start: 201204, end: 201208
  2. SIMPONI [Suspect]
     Indication: RHEUMATOID ARTHRITIS
     Route: 058
     Dates: start: 2012
  3. SIMPONI [Suspect]
     Indication: PSORIATIC ARTHROPATHY
     Route: 058
     Dates: start: 2012
  4. SIMPONI [Suspect]
     Indication: PSORIATIC ARTHROPATHY
     Route: 058
     Dates: start: 201204, end: 201208
  5. PLAQUENIL [Concomitant]
     Indication: RHEUMATIC DISORDER
     Route: 048
  6. CELEBREX [Concomitant]
     Indication: PAIN
     Route: 048

REACTIONS (4)
  - Bone disorder [Recovered/Resolved]
  - Bedridden [Recovered/Resolved]
  - Drug dose omission [Not Recovered/Not Resolved]
  - Device malfunction [Unknown]
